FAERS Safety Report 8824928 (Version 2)
Quarter: 2012Q4

REPORT INFORMATION
  Report Type: 
  Country: CN (occurrence: CN)
  Receive Date: 20121004
  Receipt Date: 20121004
  Transmission Date: 20130627
  Serious: Yes (Hospitalization)
  Sender: FDA-Public Use
  Company Number: CN-JNJFOC-20120912617

PATIENT
  Age: 85 Year
  Sex: Male

DRUGS (3)
  1. PARACETAMOL [Suspect]
     Route: 048
  2. PARACETAMOL [Suspect]
     Indication: PYREXIA
     Route: 048
     Dates: start: 20100617, end: 20100617
  3. MOXIFLOXACIN [Suspect]
     Indication: PYREXIA
     Route: 048
     Dates: start: 20100618

REACTIONS (1)
  - Agranulocytosis [Recovering/Resolving]
